FAERS Safety Report 18192034 (Version 1)
Quarter: 2020Q3

REPORT INFORMATION
  Report Type: Spontaneous
  Country: IT (occurrence: IT)
  Receive Date: 20200825
  Receipt Date: 20200825
  Transmission Date: 20201103
  Serious: Yes (Other)
  Sender: FDA-Public Use
  Company Number: NVSC2020IT229659

PATIENT
  Age: 74 Year
  Sex: Female

DRUGS (2)
  1. DEXAMETHASONE. [Concomitant]
     Active Substance: DEXAMETHASONE
     Indication: CORONAVIRUS INFECTION
     Dosage: UNK
     Route: 042
  2. ILARIS [Suspect]
     Active Substance: CANAKINUMAB
     Indication: CORONAVIRUS INFECTION
     Dosage: 300 MG, TOTAL
     Route: 058
     Dates: start: 20200403, end: 20200403

REACTIONS (5)
  - Clonus [Recovering/Resolving]
  - Psychomotor hyperactivity [Recovering/Resolving]
  - Sopor [Recovering/Resolving]
  - Somnolence [Recovering/Resolving]
  - Electrocardiogram abnormal [Recovering/Resolving]

NARRATIVE: CASE EVENT DATE: 20200405
